FAERS Safety Report 9678649 (Version 2)
Quarter: 2013Q4

REPORT INFORMATION
  Report Type: Report from Study
  Country: FR (occurrence: FR)
  Receive Date: 20131108
  Receipt Date: 20131202
  Transmission Date: 20140711
  Serious: Yes (Death)
  Sender: FDA-Public Use
  Company Number: FR-ROCHE-1298031

PATIENT
  Age: 60 Year
  Sex: Male

DRUGS (1)
  1. ZELBORAF [Suspect]
     Indication: MALIGNANT MELANOMA
     Route: 048
     Dates: start: 20130403, end: 201308

REACTIONS (5)
  - Disease progression [Fatal]
  - Arthralgia [Unknown]
  - Mucosal dryness [Unknown]
  - Photosensitivity reaction [Unknown]
  - Dry skin [Unknown]
